FAERS Safety Report 5470981-6 (Version None)
Quarter: 2007Q3

REPORT INFORMATION
  Report Type: 
  Country: None (occurrence: None)
  Receive Date: 20070928
  Receipt Date: 20070924
  Transmission Date: 20080115
  Serious: Yes (Hospitalization)
  Sender: FDA-Public Use
  Company Number: A0645561A

PATIENT
  Age: 70 Year
  Sex: Male
  Weight: 74.5 kg

DRUGS (3)
  1. DUTASTERIDE [Suspect]
     Indication: NEOPLASM PROPHYLAXIS
     Dosage: .5MG PER DAY
     Route: 048
     Dates: start: 20040617
  2. XANAX [Suspect]
     Indication: ANXIETY
     Dosage: .25MG AS REQUIRED
     Route: 048
     Dates: start: 20050201
  3. LYRICA [Suspect]
     Indication: NEUROPATHY
     Dosage: 50MG THREE TIMES PER DAY
     Route: 048
     Dates: start: 20061205

REACTIONS (1)
  - SYNCOPE [None]
